FAERS Safety Report 6001299-0 (Version None)
Quarter: 2008Q4

REPORT INFORMATION
  Report Type: 
  Country: None (occurrence: None)
  Receive Date: 20081215
  Receipt Date: 20081208
  Transmission Date: 20090506
  Serious: Yes (Other)
  Sender: FDA-Public Use
  Company Number: PHHY2008DE27039

PATIENT
  Sex: Male
  Weight: 42 kg

DRUGS (3)
  1. MYFORTIC [Suspect]
     Indication: RENAL TRANSPLANT
     Dosage: 360 MG
     Route: 048
     Dates: start: 20080501, end: 20080913
  2. MYFORTIC [Suspect]
     Dosage: UNK
     Route: 048
     Dates: start: 20080819, end: 20080913
  3. COTRIM [Suspect]
     Indication: PNEUMOCYSTIS JIROVECI PNEUMONIA
     Dosage: 1 DF, TID
     Route: 048
     Dates: start: 20080902, end: 20080917

REACTIONS (1)
  - AUTOIMMUNE THROMBOCYTOPENIA [None]
